FAERS Safety Report 23424374 (Version 6)
Quarter: 2024Q3

REPORT INFORMATION
  Report Type: Report from Study
  Country: CA (occurrence: CA)
  Receive Date: 20240120
  Receipt Date: 20240806
  Transmission Date: 20241017
  Serious: Yes (Hospitalization, Other)
  Sender: ROCHE
  Company Number: CA-ROCHE-3342105

PATIENT
  Sex: Female

DRUGS (8)
  1. OCREVUS [Suspect]
     Active Substance: OCRELIZUMAB
     Indication: Relapsing-remitting multiple sclerosis
     Dosage: 300 MG AT DAY 0 AND 14, THEN 600 MG EVERY 6 MONTHS
     Route: 042
     Dates: start: 20200318
  2. OCREVUS [Suspect]
     Active Substance: OCRELIZUMAB
     Route: 042
  3. GABAPENTIN [Concomitant]
     Active Substance: GABAPENTIN
  4. IRON [Concomitant]
     Active Substance: IRON
  5. BACLOFEN [Concomitant]
     Active Substance: BACLOFEN
  6. SERTRALINE [Concomitant]
     Active Substance: SERTRALINE HYDROCHLORIDE
  7. VALACYCLOVIR [Concomitant]
     Active Substance: VALACYCLOVIR HYDROCHLORIDE
  8. Atroven [Concomitant]
     Dosage: 1 PUFF INHALED WHEN NEEDED

REACTIONS (6)
  - Lower respiratory tract infection [Not Recovered/Not Resolved]
  - Asthma [Recovered/Resolved]
  - Lower respiratory tract infection [Recovered/Resolved]
  - Influenza [Recovered/Resolved]
  - Asthma [Recovering/Resolving]
  - Lower respiratory tract congestion [Recovered/Resolved]
